FAERS Safety Report 23921125 (Version 2)
Quarter: 2024Q2

REPORT INFORMATION
  Report Type: Spontaneous
  Country: CA (occurrence: CA)
  Receive Date: 20240530
  Receipt Date: 20240531
  Transmission Date: 20240716
  Serious: Yes (Death)
  Sender: FDA-Public Use
  Company Number: CA-PFIZER INC-PV202400070585

PATIENT
  Age: 51 Year
  Sex: Male

DRUGS (3)
  1. ELREXFIO [Suspect]
     Active Substance: ELRANATAMAB-BCMM
     Dosage: 12 MG DAY 1
     Route: 058
     Dates: start: 20240405
  2. ELREXFIO [Suspect]
     Active Substance: ELRANATAMAB-BCMM
     Dosage: 32 MG DAY 4
     Route: 058
  3. ELREXFIO [Suspect]
     Active Substance: ELRANATAMAB-BCMM
     Dosage: 76 MG, WEEKLY
     Route: 058
     Dates: end: 20240528

REACTIONS (1)
  - Death [Fatal]
